FAERS Safety Report 16863621 (Version 1)
Quarter: 2019Q3

REPORT INFORMATION
  Report Type: Report from Study
  Country: KR (occurrence: KR)
  Receive Date: 20190927
  Receipt Date: 20190927
  Transmission Date: 20191005
  Serious: Yes (Hospitalization)
  Sender: FDA-Public Use
  Company Number: KR-CELGENEUS-KOR-20190900661

PATIENT
  Age: 69 Year
  Sex: Male
  Weight: 78 kg

DRUGS (22)
  1. SEROQUEL [Concomitant]
     Active Substance: QUETIAPINE FUMARATE
     Indication: DELIRIUM
     Dosage: 25 MILLIGRAM
     Route: 048
     Dates: start: 20190813
  2. POMALIDOMIDE [Suspect]
     Active Substance: POMALIDOMIDE
     Indication: PLASMA CELL MYELOMA
     Route: 048
     Dates: start: 20190801, end: 20190903
  3. CYCLOPHOSPHAMIDE. [Suspect]
     Active Substance: CYCLOPHOSPHAMIDE
     Indication: PLASMA CELL MYELOMA
     Route: 048
     Dates: start: 20190801, end: 20190903
  4. HARNAL [Concomitant]
     Active Substance: TAMSULOSIN HYDROCHLORIDE
     Indication: DYSURIA
     Dosage: .2 MILLIGRAM
     Route: 048
     Dates: start: 20190723
  5. KEPPRA [Concomitant]
     Active Substance: LEVETIRACETAM
     Indication: EPILEPSY
     Dosage: 1000 MILLIGRAM
     Route: 048
     Dates: start: 20190718
  6. PERIDOL [Concomitant]
     Active Substance: HALOPERIDOL
     Indication: DELIRIUM
     Dosage: .75 MILLIGRAM
     Route: 048
     Dates: start: 20190807
  7. LEVOPLUS [Concomitant]
     Indication: PNEUMONIA
     Dosage: 750 MILLIGRAM
     Route: 048
     Dates: start: 20190708
  8. PENIRAMIN [Concomitant]
     Indication: HYPERSENSITIVITY
     Dosage: 6 MILLIGRAM
     Route: 048
     Dates: start: 20190724, end: 20190806
  9. VFEND [Concomitant]
     Active Substance: VORICONAZOLE
     Indication: INFECTION
     Dosage: 400 MILLIGRAM
     Route: 048
     Dates: start: 20190627
  10. DEXAMETHASONE. [Suspect]
     Active Substance: DEXAMETHASONE
     Route: 048
     Dates: start: 20190829, end: 20190903
  11. HINECHOL [Concomitant]
     Indication: DYSURIA
     Dosage: 75 MILLIGRAM
     Route: 048
     Dates: start: 20190723
  12. SYNTHYROXINE [Concomitant]
     Active Substance: LEVOTHYROXINE SODIUM
     Indication: HYPOTHYROIDISM
     Dosage: 125 MICROGRAM
     Route: 048
     Dates: start: 20190628
  13. DIABEX [Concomitant]
     Active Substance: METFORMIN HYDROCHLORIDE
     Indication: DIABETES MELLITUS
     Dosage: 500 MILLIGRAM
     Route: 048
     Dates: start: 20190701
  14. XYZAL [Concomitant]
     Active Substance: LEVOCETIRIZINE DIHYDROCHLORIDE
     Indication: HYPERSENSITIVITY
     Dosage: 5 MILLIGRAM
     Route: 048
     Dates: start: 20190124, end: 20190802
  15. DIACAMAX [Concomitant]
     Indication: MINERAL SUPPLEMENTATION
     Dosage: 1250 MG ,1000 IU
     Route: 048
     Dates: start: 20170920
  16. IR CODON [Concomitant]
     Active Substance: OXYCODONE HYDROCHLORIDE
     Indication: NEUROPATHY PERIPHERAL
     Dosage: 30 MILLIGRAM
     Route: 048
     Dates: start: 20190714
  17. DUROGESIC D-TRANS [Concomitant]
     Active Substance: FENTANYL
     Indication: NEUROPATHY PERIPHERAL
     Dosage: 4.2 MILLIGRAM
     Route: 048
     Dates: start: 20190404
  18. DEXAMETHASONE. [Suspect]
     Active Substance: DEXAMETHASONE
     Indication: PLASMA CELL MYELOMA
     Route: 048
     Dates: start: 20190801
  19. NEXIUM [Concomitant]
     Active Substance: ESOMEPRAZOLE MAGNESIUM
     Indication: GASTRITIS
     Dosage: 20 MILLIGRAM
     Route: 048
     Dates: start: 20120302
  20. CAROL-F [Concomitant]
     Indication: PNEUMONIA
     Dosage: 1106.7 MILLIGRAM
     Route: 048
     Dates: start: 20190718, end: 20190806
  21. PERATAM [Concomitant]
     Indication: PNEUMONIA
     Dosage: 4 GRAM
     Route: 050
     Dates: start: 20190624, end: 20190809
  22. DIACAMAX [Concomitant]
     Indication: VITAMIN SUPPLEMENTATION

REACTIONS (2)
  - Pneumonia [Not Recovered/Not Resolved]
  - Diabetic ketoacidosis [Recovered/Resolved]

NARRATIVE: CASE EVENT DATE: 20190903
